FAERS Safety Report 6293566-0 (Version None)
Quarter: 2009Q3

REPORT INFORMATION
  Report Type: 
  Country: None (occurrence: None)
  Receive Date: 20090803
  Receipt Date: 20090722
  Transmission Date: 20100115
  Serious: Yes (Other)
  Sender: FDA-Public Use
  Company Number: JP-JNJFOC-20090706066

PATIENT
  Sex: Male
  Weight: 58 kg

DRUGS (7)
  1. REMICADE [Suspect]
     Dosage: INFUSION 2-3 ON UNSPECIFIED DATES
     Route: 042
  2. REMICADE [Suspect]
     Dosage: INFUSION 2-3 ON UNSPECIFIED DATES
     Route: 042
  3. REMICADE [Suspect]
     Indication: BEHCET'S SYNDROME
     Dosage: INFUSION 2-3 ON UNSPECIFIED DATES
     Route: 042
  4. PREDNISOLONE [Suspect]
     Indication: BEHCET'S SYNDROME
  5. COLCHICINE [Concomitant]
     Indication: BEHCET'S SYNDROME
  6. FOSAMAC [Concomitant]
     Indication: OSTEOPOROSIS
     Route: 048
  7. PARIET [Concomitant]
     Indication: GASTRIC ULCER
     Route: 048

REACTIONS (2)
  - PNEUMONIA [None]
  - TUBERCULOSIS [None]
